FAERS Safety Report 22647131 (Version 1)
Quarter: 2023Q2

REPORT INFORMATION
  Report Type: Spontaneous
  Country: US (occurrence: US)
  Receive Date: 20230627
  Receipt Date: 20230627
  Transmission Date: 20230722
  Serious: Yes (Hospitalization)
  Sender: FDA-Public Use
  Company Number: US-TEVA-2023-US-2899909

PATIENT
  Age: 20 Year
  Sex: Male

DRUGS (4)
  1. LACTULOSE [Suspect]
     Active Substance: LACTULOSE
     Indication: Hepatic encephalopathy
     Route: 065
  2. RIFAXIMIN [Suspect]
     Active Substance: RIFAXIMIN
     Indication: Hepatic encephalopathy
     Route: 065
  3. ORNITHINE [Suspect]
     Active Substance: ORNITHINE
     Indication: Hepatic encephalopathy
     Route: 065
  4. ASPARAGINE [Suspect]
     Active Substance: ASPARAGINE
     Indication: Hepatic encephalopathy
     Route: 065

REACTIONS (2)
  - Paradoxical drug reaction [Unknown]
  - Treatment failure [Unknown]
